FAERS Safety Report 8596627-6 (Version None)
Quarter: 2012Q3

REPORT INFORMATION
  Report Type: 
  Country: None (occurrence: None)
  Receive Date: 20120815
  Receipt Date: 20120801
  Transmission Date: 20120928
  Serious: Yes (Other)
  Sender: FDA-Public Use
  Company Number: CHPA2012US017496

PATIENT
  Age: 68 Year
  Sex: Male

DRUGS (3)
  1. LAMISIL [Suspect]
     Indication: ONYCHOMYCOSIS
     Dosage: A SMALL AMOUNT APPLIED TO THE TOE NAILS, EVERY 2 TO 3 DAYS
     Route: 061
     Dates: start: 20120401, end: 20120601
  2. PROBIOTICS NOS [Concomitant]
     Indication: CROHN'S DISEASE
     Dosage: UNK, UNK
  3. REMICADE [Concomitant]
     Indication: CROHN'S DISEASE
     Dosage: UNK, Q6W
     Dates: start: 20050101

REACTIONS (2)
  - VISION BLURRED [None]
  - OFF LABEL USE [None]
